FAERS Safety Report 4325288-7 (Version None)
Quarter: 2004Q1

REPORT INFORMATION
  Report Type: 
  Country: None (occurrence: None)
  Receive Date: 20040324
  Receipt Date: 20040310
  Transmission Date: 20041129
  Serious: Yes (Life-Threatening, Hospitalization)
  Sender: FDA-Public Use
  Company Number: 2004CG00366

PATIENT
  Age: 86 Year
  Sex: Female

DRUGS (5)
  1. NEXIUM [Suspect]
     Indication: ABDOMINAL PAIN UPPER
     Dosage: 20 MG DAILY PO
     Route: 048
     Dates: start: 20040202, end: 20040206
  2. GAVISCON [Concomitant]
  3. DITROPAN [Concomitant]
  4. MICROLAX [Concomitant]
  5. CACIT D3 [Concomitant]

REACTIONS (14)
  - ABDOMINAL PAIN [None]
  - ALKALOSIS [None]
  - BACTERIAL INFECTION [None]
  - COMA [None]
  - FACIAL PALSY [None]
  - GASTRITIS [None]
  - GASTROINTESTINAL CANDIDIASIS [None]
  - HYPOCHLORAEMIA [None]
  - HYPOKALAEMIA [None]
  - HYPONATRAEMIA [None]
  - MONOPLEGIA [None]
  - NAUSEA [None]
  - URINARY TRACT INFECTION [None]
  - VOMITING [None]
